FAERS Safety Report 21665972 (Version 2)
Quarter: 2024Q1

REPORT INFORMATION
  Report Type: Report from Study
  Country: NL (occurrence: NL)
  Receive Date: 20221201
  Receipt Date: 20240228
  Transmission Date: 20240410
  Serious: Yes (Life-Threatening, Hospitalization)
  Sender: FDA-Public Use
  Company Number: None

PATIENT
  Age: 18 Year
  Sex: Female
  Weight: 46.6 kg

DRUGS (3)
  1. OLANZAPINE [Suspect]
     Active Substance: OLANZAPINE
     Indication: Mental disorder
     Dosage: 1 PIECE 2 TIMES A DAY,  BRAND NAME NOT SPECIFIED
     Route: 065
     Dates: start: 20181222
  2. TEMAZEPAM [Concomitant]
     Active Substance: TEMAZEPAM
     Indication: Product used for unknown indication
     Dosage: 10 MG,  BRAND NAME NOT SPECIFIED
     Route: 065
  3. POLYETHYLENE GLYCOL 4000 [Concomitant]
     Active Substance: POLYETHYLENE GLYCOL 4000
     Indication: Product used for unknown indication
     Dosage: POWDER FOR DRINK, 10 G, MACROGOL POWDER V DRINK 10G / FORLAX POWDER FOR DRINK SACHET 10G,
     Route: 065

REACTIONS (4)
  - Seizure [Unknown]
  - Snoring [Unknown]
  - Depressed level of consciousness [Unknown]
  - Hypoxia [Unknown]
